FAERS Safety Report 24222290 (Version 3)
Quarter: 2024Q3

REPORT INFORMATION
  Report Type: Spontaneous
  Country: GB (occurrence: GB)
  Receive Date: 20240819
  Receipt Date: 20240911
  Transmission Date: 20241017
  Serious: Yes (Hospitalization)
  Sender: MYLAN
  Company Number: GB-MYLANLABS-2024M1075108

PATIENT
  Age: 67 Year
  Sex: Male

DRUGS (23)
  1. CLOZARIL [Suspect]
     Active Substance: CLOZAPINE
     Indication: Parkinson^s disease psychosis
     Dosage: 25 MILLIGRAM, PM (AT NIGHT)
     Route: 048
     Dates: start: 20200909
  2. TRIMETHOPRIM [Concomitant]
     Active Substance: TRIMETHOPRIM
     Dosage: 1 DOSAGE FORM, PM (EACH NIGHT)
     Route: 065
  3. TADALAFIL [Concomitant]
     Active Substance: TADALAFIL
     Indication: Erectile dysfunction
     Dosage: 1 DOSAGE FORM, QD (ONCE DAILY)
     Route: 065
  4. TRAMADOL [Concomitant]
     Active Substance: TRAMADOL\TRAMADOL HYDROCHLORIDE
     Indication: Arthralgia
     Dosage: 2 DOSAGE FORM, AM (IN THE MORNING)
     Route: 065
  5. ALBUTEROL SULFATE [Concomitant]
     Active Substance: ALBUTEROL SULFATE
     Indication: Dyspnoea
     Dosage: 1 DOSE AS NEEDED, PRN
     Route: 055
  6. RIVAROXABAN [Concomitant]
     Active Substance: RIVAROXABAN
     Indication: Pulmonary embolism
     Dosage: 1 DOSAGE FORM, QD (ONE DAILY)
     Route: 065
  7. SERTRALINE [Concomitant]
     Active Substance: SERTRALINE HYDROCHLORIDE
     Indication: Depression
     Dosage: 1 DOSAGE FORM, QD (ONE DAILY)
     Route: 065
  8. ATORVASTATIN [Concomitant]
     Active Substance: ATORVASTATIN
     Indication: Cerebrovascular disorder
     Dosage: 1 DOSAGE FORM, QD (ONE DAILY)
     Route: 065
  9. STALEVO [Concomitant]
     Active Substance: CARBIDOPA\ENTACAPONE\LEVODOPA
     Indication: Parkinson^s disease
     Dosage: 1 DOSAGE FORM AT 6.00 PM (100 MILLIGRAM/25 MILLIGRAM/200 MILLIGRAM)
     Route: 065
  10. STALEVO [Concomitant]
     Active Substance: CARBIDOPA\ENTACAPONE\LEVODOPA
     Dosage: 2 DOSAGE FORM, BID, 1 AT 8AM AND 1 AT 12PM (150 MILLIGRAM/37.5 MILLIGRAM/200 MILLIGRAM)
     Route: 065
  11. SENNA [Concomitant]
     Active Substance: SENNA LEAF\SENNOSIDES\SENNOSIDES A AND B
     Indication: Constipation
     Dosage: 1 OR 2 DOSAGE FORM, PM (AT NIGHT)
     Route: 065
  12. SENNA [Concomitant]
     Active Substance: SENNA LEAF\SENNOSIDES\SENNOSIDES A AND B
     Indication: Parkinson^s disease
  13. Zerobase [Concomitant]
     Indication: Cellulitis
     Dosage: APPLY LIBERALLY TO THE AFFECTED AREA(S) AS DIRECTED
     Route: 065
  14. APOMORPHINE HYDROCHLORIDE [Concomitant]
     Active Substance: APOMORPHINE HYDROCHLORIDE
     Indication: Parkinson^s disease
     Dosage: 10AM TO 10PM AT 5.5MG/HR
     Route: 065
  15. LAXIDO ORANGE [Concomitant]
     Indication: Constipation
     Dosage: 1-2 SACHETS UPTO TWICE A DAY WHEN REQUIRED
     Route: 065
  16. AMANTADINE [Concomitant]
     Active Substance: AMANTADINE
     Indication: Parkinson^s disease
     Dosage: 1 DOSAGE FORM, BID (TAKE ONE AT 8AM AND ANOTHER AT 2PM)
     Route: 065
  17. ACETAMINOPHEN [Concomitant]
     Active Substance: ACETAMINOPHEN
     Indication: Arthralgia
     Dosage: 2 DOSAGE FORM, 3 TO 4 TIMES PER DAY
     Route: 065
  18. LANSOPRAZOLE [Concomitant]
     Active Substance: LANSOPRAZOLE
     Indication: Barrett^s oesophagus
     Dosage: 1 DOSAGE FORM, QD (ONCE DAILY)
     Route: 065
  19. TOLTERODINE [Concomitant]
     Active Substance: TOLTERODINE
     Indication: Lower urinary tract symptoms
     Dosage: 1 DOSAGE FORM, BID (TWICE DAILY)
     Route: 065
  20. NEBIDO [Concomitant]
     Active Substance: TESTOSTERONE UNDECANOATE
     Indication: Blood testosterone abnormal
     Dosage: 4 MILLILITER, EVERY 11 WEEKS (1000 MILLIGRAM PER 4 MILLILITRE)
     Route: 065
  21. BENSERAZIDE HYDROCHLORIDE\LEVODOPA [Concomitant]
     Active Substance: BENSERAZIDE HYDROCHLORIDE\LEVODOPA
     Indication: Parkinson^s disease
     Dosage: 2 DOSAGE FORM, AM (EACH MORNING)
     Route: 065
  22. MESALAMINE [Concomitant]
     Active Substance: MESALAMINE
     Indication: Colitis ulcerative
     Dosage: 2 DOSAGE FORM, TID (3 TIMES A DAY)
     Route: 065
  23. SCOPOLAMINE HYDROBROMIDE [Concomitant]
     Active Substance: SCOPOLAMINE HYDROBROMIDE
     Indication: Salivary hypersecretion
     Dosage: TAKE HALF TO ONE DOSAGE FORM, TID (THREE TIMES A DAY)
     Route: 065

REACTIONS (2)
  - Urinary tract infection [Recovered/Resolved]
  - Product dose omission issue [Recovered/Resolved]

NARRATIVE: CASE EVENT DATE: 20240808
